FAERS Safety Report 7244008-X (Version None)
Quarter: 2011Q1

REPORT INFORMATION
  Report Type: 
  Country: None (occurrence: None)
  Receive Date: 20110125
  Receipt Date: 20110121
  Transmission Date: 20110831
  Serious: Yes (Hospitalization)
  Sender: FDA-Public Use
  Company Number: FR-MERCK-1101FRA00050

PATIENT
  Age: 36 Year
  Sex: Male

DRUGS (4)
  1. DOMPERIDONE [Suspect]
     Route: 048
     Dates: start: 20101002, end: 20101002
  2. TRAMADOL HYDROCHLORIDE [Suspect]
     Route: 048
     Dates: start: 20101002, end: 20101002
  3. SINGULAIR [Suspect]
     Route: 048
     Dates: start: 20101002, end: 20101002
  4. TRANEXAMIC ACID [Suspect]
     Route: 048
     Dates: start: 20101002, end: 20101002

REACTIONS (3)
  - HYPOGLYCAEMIA [None]
  - GRAND MAL CONVULSION [None]
  - INTENTIONAL OVERDOSE [None]
